FAERS Safety Report 25472209 (Version 7)
Quarter: 2025Q3

REPORT INFORMATION
  Report Type: Report from Study
  Country: US (occurrence: US)
  Receive Date: 20250624
  Receipt Date: 20250917
  Transmission Date: 20251020
  Serious: Yes (Other)
  Sender: ACADIA PHARMACEUTICALS
  Company Number: US-ACADIA PHARMACEUTICALS INC.-ACA-2025-PIM-007382

PATIENT
  Age: 74 Year
  Sex: Male

DRUGS (2)
  1. NUPLAZID [Suspect]
     Active Substance: PIMAVANSERIN TARTRATE
     Indication: Parkinson^s disease psychosis
     Dosage: 34 MILLIGRAM, QD
     Route: 048
     Dates: start: 20250620
  2. QUETIAPINE [Concomitant]
     Active Substance: QUETIAPINE

REACTIONS (6)
  - Hallucination [Recovered/Resolved]
  - Hallucination [Recovering/Resolving]
  - Lethargy [Unknown]
  - Fatigue [Unknown]
  - Delusion [Recovering/Resolving]
  - Somnolence [Recovering/Resolving]

NARRATIVE: CASE EVENT DATE: 20250701
